FAERS Safety Report 9904128 (Version 1)
Quarter: 2014Q1

REPORT INFORMATION
  Report Type: Spontaneous
  Country: US (occurrence: US)
  Receive Date: 20140218
  Receipt Date: 20140218
  Transmission Date: 20141002
  Serious: No
  Sender: FDA-Public Use
  Company Number: US-BIOGENIDEC-2014BI013278

PATIENT
  Sex: Female

DRUGS (2)
  1. TECFIDERA [Suspect]
     Indication: MULTIPLE SCLEROSIS
     Route: 048
  2. IBUPROFEN [Concomitant]

REACTIONS (7)
  - Fatigue [Unknown]
  - Mood swings [Unknown]
  - Cough [Unknown]
  - Confusional state [Unknown]
  - Rhinorrhoea [Unknown]
  - Flushing [Unknown]
  - Pruritus [Unknown]
